FAERS Safety Report 15622520 (Version 1)
Quarter: 2018Q4

REPORT INFORMATION
  Report Type: Other
  Country: IT (occurrence: IT)
  Receive Date: 20181115
  Receipt Date: 20181115
  Transmission Date: 20190205
  Serious: Yes (Other)
  Sender: FDA-Public Use
  Company Number: IT-ACTELION-A-CH2018-181564

PATIENT
  Age: 59 Year
  Sex: Female

DRUGS (1)
  1. BOSENTAN. [Suspect]
     Active Substance: BOSENTAN
     Indication: PULMONARY ARTERIAL HYPERTENSION
     Dosage: UNK
     Route: 048
     Dates: start: 2004

REACTIONS (3)
  - Hepatic arteriovenous malformation [Unknown]
  - Pulmonary artery dilatation [Unknown]
  - Bronchial artery aneurysm [Unknown]

NARRATIVE: CASE EVENT DATE: 2014
